FAERS Safety Report 5643854-3 (Version None)
Quarter: 2008Q1

REPORT INFORMATION
  Report Type: 
  Country: None (occurrence: None)
  Receive Date: 20080131
  Receipt Date: 20071221
  Transmission Date: 20080703
  Serious: Yes (Hospitalization)
  Sender: FDA-Public Use
  Company Number: 163-21880-07100683

PATIENT
  Age: 82 Year
  Sex: Male

DRUGS (3)
  1. REVLIMID [Suspect]
     Indication: MYELODYSPLASTIC SYNDROME
     Dosage: 5 MG, 1 IN 1 D, ORAL 10 MG, 2 IN 1 D, ORAL 10 MG, 1 IN 1 D, ORAL
     Route: 048
     Dates: start: 20071015, end: 20071101
  2. REVLIMID [Suspect]
     Indication: MYELODYSPLASTIC SYNDROME
     Dosage: 5 MG, 1 IN 1 D, ORAL 10 MG, 2 IN 1 D, ORAL 10 MG, 1 IN 1 D, ORAL
     Route: 048
     Dates: start: 20070914
  3. REVLIMID [Suspect]
     Indication: MYELODYSPLASTIC SYNDROME
     Dosage: 5 MG, 1 IN 1 D, ORAL 10 MG, 2 IN 1 D, ORAL 10 MG, 1 IN 1 D, ORAL
     Route: 048
     Dates: start: 20071101

REACTIONS (16)
  - AGEUSIA [None]
  - ANOREXIA [None]
  - ASTHENIA [None]
  - BLOOD CREATININE INCREASED [None]
  - CHEST PAIN [None]
  - DYSPNOEA [None]
  - FATIGUE [None]
  - HAEMOGLOBIN DECREASED [None]
  - HYPOTENSION [None]
  - LISTLESS [None]
  - NEUTROPENIA [None]
  - OEDEMA PERIPHERAL [None]
  - PULMONARY THROMBOSIS [None]
  - RASH [None]
  - RASH GENERALISED [None]
  - WHITE BLOOD CELL COUNT DECREASED [None]
